FAERS Safety Report 4332795-X (Version None)
Quarter: 2004Q1

REPORT INFORMATION
  Report Type: 
  Country: None (occurrence: None)
  Receive Date: 20040330
  Receipt Date: 20040318
  Transmission Date: 20041129
  Serious: Yes (Other)
  Sender: FDA-Public Use
  Company Number: GBWYE651118MAR04

PATIENT
  Sex: Male

DRUGS (1)
  1. MINOCIN [Suspect]

REACTIONS (2)
  - ROSACEA [None]
  - SYSTEMIC LUPUS ERYTHEMATOSUS [None]
